FAERS Safety Report 11747667 (Version 4)
Quarter: 2016Q2

REPORT INFORMATION
  Report Type: Spontaneous
  Country: US (occurrence: US)
  Receive Date: 20151117
  Receipt Date: 20160420
  Transmission Date: 20160815
  Serious: Yes (Other)
  Sender: FDA-Public Use
  Company Number: US-MDT-ADR-2015-02170

PATIENT
  Age: 15 Year
  Sex: Female

DRUGS (2)
  1. LIORESAL [Suspect]
     Active Substance: BACLOFEN
     Dosage: 560.1MCG/DAY
     Route: 037
  2. LIORESAL [Suspect]
     Active Substance: BACLOFEN
     Dosage: 560.1MCG/DAY
     Route: 037

REACTIONS (4)
  - Muscle spasticity [Recovered/Resolved]
  - Respiratory rate decreased [Recovered/Resolved]
  - Incorrect route of drug administration [Recovered/Resolved]
  - Implant site extravasation [Recovered/Resolved]
